FAERS Safety Report 5900276-5 (Version None)
Quarter: 2008Q3

REPORT INFORMATION
  Report Type: 
  Country: None (occurrence: None)
  Receive Date: 20080926
  Receipt Date: 20080919
  Transmission Date: 20090109
  Serious: Yes (Hospitalization, Other)
  Sender: FDA-Public Use
  Company Number: PHBS2008CN05809

PATIENT
  Age: 64 Year
  Sex: Male

DRUGS (1)
  1. LOTENSIN [Suspect]
     Indication: MYOCARDIAL INFARCTION
     Dosage: 5 MG, QD
     Route: 048

REACTIONS (18)
  - ABDOMINAL DISCOMFORT [None]
  - ABDOMINAL DISTENSION [None]
  - ANOREXIA [None]
  - APPETITE DISORDER [None]
  - BILIARY DILATATION [None]
  - BILIARY TRACT DISORDER [None]
  - BLOOD PRESSURE INCREASED [None]
  - CHOLANGIOLITIS [None]
  - CHOLECYSTITIS [None]
  - CHOLELITHIASIS [None]
  - CHROMATURIA [None]
  - FAECES DISCOLOURED [None]
  - FATIGUE [None]
  - HEPATIC CYST [None]
  - HEPATIC PAIN [None]
  - HEPATITIS [None]
  - JAUNDICE CHOLESTATIC [None]
  - REGURGITATION [None]
